FAERS Safety Report 4413530-3 (Version None)
Quarter: 2004Q3

REPORT INFORMATION
  Report Type: 
  Country: None (occurrence: None)
  Receive Date: 20040728
  Receipt Date: 20040721
  Transmission Date: 20050211
  Serious: Yes (Hospitalization, Other)
  Sender: FDA-Public Use
  Company Number: 200419307BWH

PATIENT
  Age: 55 Year
  Sex: Male

DRUGS (7)
  1. DTIC-DOME [Suspect]
     Indication: METASTATIC MALIGNANT MELANOMA
     Dosage: 1000 MG/M2, Q1HR, INTRAVENOUS
     Route: 042
     Dates: start: 20030210
  2. ATIVAN [Concomitant]
  3. ZOFRAN [Concomitant]
  4. LOPID [Concomitant]
  5. MULTI-VITAMINS [Concomitant]
  6. DARVON [Concomitant]
  7. ACTIFED [Concomitant]

REACTIONS (4)
  - ELECTROCARDIOGRAM REPOLARISATION ABNORMALITY [None]
  - EXTRASYSTOLES [None]
  - HEART RATE IRREGULAR [None]
  - PALPITATIONS [None]
